FAERS Safety Report 8229758-0 (Version None)
Quarter: 2012Q1

REPORT INFORMATION
  Report Type: 
  Country: None (occurrence: None)
  Receive Date: 20120322
  Receipt Date: 20120319
  Transmission Date: 20120608
  Serious: Yes (Hospitalization)
  Sender: FDA-Public Use
  Company Number: US-ASTRAZENECA-2011SE18533

PATIENT
  Age: 65 Year
  Sex: Female
  Weight: 106.6 kg

DRUGS (3)
  1. SYMBICORT [Suspect]
     Indication: ASTHMA
     Dosage: 640 MCG BID
     Route: 055
  2. PULMICORT FLEXHALER [Suspect]
     Indication: ASTHMA
     Dosage: 180 MCG, 2 PUFFS, BID
     Route: 055
     Dates: start: 20110101
  3. SYMBICORT [Suspect]
     Dosage: 160/4. MCG, UNKNOWN
     Route: 055
     Dates: start: 20110101, end: 20110101

REACTIONS (6)
  - ADVERSE DRUG REACTION [None]
  - DYSPNOEA [None]
  - DRUG HYPERSENSITIVITY [None]
  - ASTHMA [None]
  - DRUG INEFFECTIVE [None]
  - CHEST DISCOMFORT [None]
